FAERS Safety Report 10249915 (Version 1)
Quarter: 2014Q2

REPORT INFORMATION
  Report Type: Spontaneous
  Country: US (occurrence: US)
  Receive Date: 20140620
  Receipt Date: 20140620
  Transmission Date: 20141212
  Serious: Yes (Other)
  Sender: FDA-Public Use
  Company Number: US-BAYER-2014-087913

PATIENT
  Sex: Female

DRUGS (2)
  1. BAYER ASPIRIN REGIMEN ADULT LOW STRENGTH [Suspect]
     Indication: SINUS CONGESTION
     Dosage: 1 DF, PRN ONCE PER WEEK
     Route: 048
     Dates: start: 201305, end: 201305
  2. ONE A DAY WOMEN^S 50+ HEALTHY ADVANTAGE [Suspect]
     Dosage: 1 DF, QD WITH FOOD
     Route: 048
     Dates: start: 201406, end: 201406

REACTIONS (6)
  - Convulsion [Recovered/Resolved]
  - Blood pressure increased [Recovered/Resolved]
  - Ocular hyperaemia [Not Recovered/Not Resolved]
  - Ocular hyperaemia [Not Recovered/Not Resolved]
  - Intentional product misuse [None]
  - Product taste abnormal [None]
